FAERS Safety Report 10857209 (Version 2)
Quarter: 2015Q1

REPORT INFORMATION
  Report Type: Spontaneous
  Country: JP (occurrence: JP)
  Receive Date: 20150223
  Receipt Date: 20150227
  Transmission Date: 20150721
  Serious: Yes (Other)
  Sender: FDA-Public Use
  Company Number: PHJP2015JP001751

PATIENT
  Age: 56 Year
  Sex: Male

DRUGS (5)
  1. METHOTREXATE [Suspect]
     Active Substance: METHOTREXATE
     Indication: STEM CELL TRANSPLANT
     Dosage: UNK
     Route: 065
     Dates: start: 201205
  2. METHOTREXATE [Suspect]
     Active Substance: METHOTREXATE
     Indication: GRAFT VERSUS HOST DISEASE
  3. SANDIMMUNE [Suspect]
     Active Substance: CYCLOSPORINE
     Indication: STEM CELL TRANSPLANT
     Route: 065
     Dates: start: 201205, end: 20120720
  4. SANDIMMUNE [Suspect]
     Active Substance: CYCLOSPORINE
     Indication: GRAFT VERSUS HOST DISEASE
  5. NEORAL [Suspect]
     Active Substance: CYCLOSPORINE
     Indication: STEM CELL TRANSPLANT
     Dosage: 275 MG, QD
     Route: 048
     Dates: start: 20120721

REACTIONS (16)
  - Cytomegalovirus infection [Unknown]
  - Headache [Recovering/Resolving]
  - Diplopia [Recovered/Resolved]
  - Anaemia [Unknown]
  - Herpes virus infection [Unknown]
  - Vomiting [Unknown]
  - Ophthalmoplegia [Unknown]
  - Platelet count decreased [Unknown]
  - Vasculitis cerebral [Unknown]
  - Tolosa-Hunt syndrome [Unknown]
  - Vascular wall hypertrophy [Unknown]
  - Arterial occlusive disease [Unknown]
  - Arterial thrombosis [Unknown]
  - Eye pain [Recovering/Resolving]
  - Renal impairment [Unknown]
  - Red blood cell sedimentation rate increased [Unknown]
